FAERS Safety Report 7505727-0 (Version None)
Quarter: 2011Q2

REPORT INFORMATION
  Report Type: 
  Country: None (occurrence: None)
  Receive Date: 20110526
  Receipt Date: 20110517
  Transmission Date: 20111010
  Serious: Yes (Hospitalization)
  Sender: FDA-Public Use
  Company Number: US-AMGEN-USASP2011025490

PATIENT
  Age: 82 Year
  Sex: Female

DRUGS (1)
  1. ENBREL [Suspect]
     Indication: RHEUMATOID ARTHRITIS
     Dosage: 50 MG, QWK
     Dates: start: 20030501, end: 20101001

REACTIONS (5)
  - RIB FRACTURE [None]
  - LACERATION [None]
  - ROAD TRAFFIC ACCIDENT [None]
  - CORONARY ARTERY OCCLUSION [None]
  - ANKLE FRACTURE [None]
